FAERS Safety Report 7655965-1 (Version None)
Quarter: 2011Q3

REPORT INFORMATION
  Report Type: 
  Country: None (occurrence: None)
  Receive Date: 20110804
  Receipt Date: 20110707
  Transmission Date: 20111222
  Serious: Yes (Other)
  Sender: FDA-Public Use
  Company Number: US-ROCHE-776441

PATIENT
  Sex: Male
  Weight: 83.9 kg

DRUGS (4)
  1. ACCUTANE [Suspect]
     Indication: ACNE
     Route: 048
     Dates: start: 20011123, end: 20020401
  2. IBUPROFEN [Concomitant]
  3. ACETAMINOPHEN [Concomitant]
  4. ASPIRIN [Concomitant]

REACTIONS (5)
  - COLITIS ULCERATIVE [None]
  - DEPRESSION [None]
  - IRON DEFICIENCY ANAEMIA [None]
  - IRRITABLE BOWEL SYNDROME [None]
  - LIP DRY [None]
